FAERS Safety Report 6714167-3 (Version None)
Quarter: 2010Q2

REPORT INFORMATION
  Report Type: 
  Country: None (occurrence: None)
  Receive Date: 20100506
  Receipt Date: 20100426
  Transmission Date: 20101027
  Serious: Yes (Hospitalization, Disabling, Other)
  Sender: FDA-Public Use
  Company Number: US-ROCHE-423641

PATIENT
  Sex: Male
  Weight: 85.3 kg

DRUGS (2)
  1. ACCUTANE [Suspect]
     Indication: ACNE
     Route: 048
     Dates: start: 19830415, end: 19830628
  2. ACCUTANE [Suspect]
     Dosage: REPORTED DOSE: 40MG PER DAY ALTERNATING WITH 80 MG PER DAY
     Route: 048
     Dates: start: 19830628

REACTIONS (39)
  - ALANINE AMINOTRANSFERASE INCREASED [None]
  - ANAL STENOSIS [None]
  - ANXIETY [None]
  - ARTHRODESIS [None]
  - ATELECTASIS [None]
  - BLOOD POTASSIUM INCREASED [None]
  - CHEST DISCOMFORT [None]
  - COLITIS [None]
  - COLITIS ULCERATIVE [None]
  - CROHN'S DISEASE [None]
  - DEPRESSION [None]
  - DRUG DEPENDENCE [None]
  - ELECTROCARDIOGRAM CHANGE [None]
  - ENDOCARDITIS BACTERIAL [None]
  - FALL [None]
  - GAMMA-GLUTAMYLTRANSFERASE INCREASED [None]
  - GASTROOESOPHAGEAL REFLUX DISEASE [None]
  - HIATUS HERNIA [None]
  - INFLAMMATORY BOWEL DISEASE [None]
  - INTERVERTEBRAL DISC SPACE NARROWING [None]
  - INTESTINAL HAEMORRHAGE [None]
  - INTESTINAL OBSTRUCTION [None]
  - INTRA-ABDOMINAL HAEMORRHAGE [None]
  - IRRITABLE BOWEL SYNDROME [None]
  - JOINT EFFUSION [None]
  - JOINT SPRAIN [None]
  - MENISCUS LESION [None]
  - OSTEOARTHRITIS [None]
  - OSTEOMYELITIS [None]
  - OSTEONECROSIS [None]
  - OSTEOPENIA [None]
  - OSTEOPOROSIS [None]
  - PAIN [None]
  - PSYCHOTIC DISORDER [None]
  - RAYNAUD'S PHENOMENON [None]
  - SEPSIS [None]
  - VENTRICULAR EXTRASYSTOLES [None]
  - VENTRICULAR TACHYCARDIA [None]
  - WRIST FRACTURE [None]
